FAERS Safety Report 5990519-4 (Version None)
Quarter: 2008Q4

REPORT INFORMATION
  Report Type: 
  Country: None (occurrence: None)
  Receive Date: 20081211
  Receipt Date: 20081117
  Transmission Date: 20090506
  Serious: Yes (Hospitalization, Other)
  Sender: FDA-Public Use
  Company Number: FR-PFIZER INC-2008150327

PATIENT

DRUGS (5)
  1. ATARAX [Suspect]
     Indication: DEPRESSION
     Dosage: UNK
  2. THERALENE [Suspect]
     Indication: SUICIDE ATTEMPT
     Dosage: UNK
     Dates: start: 20080912
  3. EFFEXOR [Suspect]
     Indication: SUICIDE ATTEMPT
     Dosage: UNK
     Dates: start: 20080912, end: 20080912
  4. DEPAMIDE [Suspect]
     Indication: SUICIDE ATTEMPT
     Dosage: UNK
  5. ZOLOFT [Concomitant]
     Indication: DEPRESSION

REACTIONS (3)
  - COMA [None]
  - DRUG LEVEL INCREASED [None]
  - DRUG TOXICITY [None]
